FAERS Safety Report 5333823-5 (Version None)
Quarter: 2007Q2

REPORT INFORMATION
  Report Type: 
  Country: None (occurrence: None)
  Receive Date: 20070524
  Receipt Date: 20070514
  Transmission Date: 20071010
  Serious: Yes (Hospitalization, Other)
  Sender: FDA-Public Use
  Company Number: AT-ASTRAZENECA-2007PK01026

PATIENT
  Age: 18628 Day
  Sex: Female
  Weight: 87 kg

DRUGS (3)
  1. ARIMIDEX [Suspect]
     Indication: BREAST CANCER
     Route: 048
     Dates: start: 20031001, end: 20060906
  2. ZOLADEX [Suspect]
     Indication: BREAST CANCER
     Route: 058
     Dates: start: 20031001, end: 20060906
  3. CAL D VITA [Concomitant]

REACTIONS (1)
  - MENORRHAGIA [None]
